FAERS Safety Report 19959921 (Version 1)
Quarter: 2021Q4

REPORT INFORMATION
  Report Type: Spontaneous
  Country: US (occurrence: US)
  Receive Date: 20211013
  Receipt Date: 20211013
  Transmission Date: 20220303
  Serious: No
  Sender: FDA-Public Use
  Company Number: None

PATIENT
  Age: 46 Year
  Sex: Female
  Weight: 91.17 kg

DRUGS (1)
  1. COSENTYX [Suspect]
     Active Substance: SECUKINUMAB
     Indication: Ankylosing spondylitis
     Dosage: FREQUENCY: DAY 28 (DOSE 5) THEN EVERY 4 WEEKS AS DIRECTED???OTHER FREQUENCY : UD
     Route: 058
     Dates: start: 202109

REACTIONS (1)
  - Urinary tract infection [None]
